FAERS Safety Report 6451427-8 (Version None)
Quarter: 2009Q4

REPORT INFORMATION
  Report Type: 
  Country: None (occurrence: None)
  Receive Date: 20091123
  Receipt Date: 20091118
  Transmission Date: 20100525
  Serious: Yes (Hospitalization, Other)
  Sender: FDA-Public Use
  Company Number: FR-BRISTOL-MYERS SQUIBB COMPANY-14844377

PATIENT
  Age: 71 Year
  Sex: Female

DRUGS (4)
  1. ABILIFY [Suspect]
     Indication: SCHIZOPHRENIA
     Dosage: REDUCED TO 30MG/D ON 04NOV09
     Route: 048
     Dates: start: 20090701
  2. TEGRETOL [Suspect]
     Indication: SCHIZOPHRENIA
     Dosage: TEGRETOL LP
     Route: 048
  3. KEPPRA [Suspect]
     Indication: SCHIZOPHRENIA
     Route: 048
  4. AMLOR [Suspect]
     Indication: HYPERTENSION
     Route: 048

REACTIONS (8)
  - BLOOD CREATINE PHOSPHOKINASE INCREASED [None]
  - HAEMATOMA [None]
  - HYPOTENSION [None]
  - MUSCULOSKELETAL STIFFNESS [None]
  - MYALGIA [None]
  - MYOGLOBIN BLOOD INCREASED [None]
  - NEUROLEPTIC MALIGNANT SYNDROME [None]
  - RESTLESSNESS [None]
